FAERS Safety Report 8908936 (Version 1)
Quarter: 2012Q4

REPORT INFORMATION
  Report Type: 
  Country: US (occurrence: US)
  Receive Date: 20121114
  Receipt Date: 20121114
  Transmission Date: 20130627
  Serious: No
  Sender: FDA-Public Use
  Company Number: US-MYLANLABS-2012S1001033

PATIENT

DRUGS (8)
  1. MAXZIDE [Suspect]
  2. ALPRAZOLAM [Suspect]
  3. LISINOPRIL [Suspect]
  4. METFORMIN [Suspect]
  5. PRAVASTATIN [Suspect]
  6. TRAZODONE [Suspect]
  7. CYMBALTA [Suspect]
  8. LYRICA [Concomitant]

REACTIONS (1)
  - Neuropathy peripheral [Not Recovered/Not Resolved]
